FAERS Safety Report 9961335 (Version 1)
Quarter: 2014Q1

REPORT INFORMATION
  Report Type: Spontaneous
  Country: US (occurrence: US)
  Receive Date: 20140305
  Receipt Date: 20140305
  Transmission Date: 20141002
  Serious: No
  Sender: FDA-Public Use
  Company Number: US-VERTEX PHARMACEUTICALS INC-2014-001033

PATIENT
  Age: 55 Year
  Sex: Female

DRUGS (1)
  1. INCIVEK [Suspect]
     Indication: CHRONIC HEPATITIS C
     Dosage: UNK

REACTIONS (1)
  - Thrombocytopenia [Unknown]
